FAERS Safety Report 4999795-8 (Version None)
Quarter: 2006Q2

REPORT INFORMATION
  Report Type: 
  Country: None (occurrence: None)
  Receive Date: 20060509
  Receipt Date: 20060509
  Transmission Date: 20061013
  Serious: Yes (Other)
  Sender: FDA-Public Use
  Company Number: None

PATIENT
  Age: 36 Year
  Sex: Female
  Weight: 68.0396 kg

DRUGS (2)
  1. DURAGESIC-100 [Suspect]
     Indication: OSTEOARTHRITIS
     Dosage: 1   72 HOURS   TRANSDERMAL
     Route: 062
     Dates: start: 20060324, end: 20060424
  2. DURAGESIC-100 [Suspect]
     Indication: RADICULITIS
     Dosage: 1   72 HOURS   TRANSDERMAL
     Route: 062
     Dates: start: 20060324, end: 20060424

REACTIONS (5)
  - DRUG WITHDRAWAL SYNDROME [None]
  - FEELING HOT AND COLD [None]
  - NAUSEA [None]
  - PHARMACEUTICAL PRODUCT COMPLAINT [None]
  - THERAPEUTIC RESPONSE UNEXPECTED WITH DRUG SUBSTITUTION [None]
